FAERS Safety Report 6059671-9 (Version None)
Quarter: 2009Q1

REPORT INFORMATION
  Report Type: 
  Country: None (occurrence: None)
  Receive Date: 20090130
  Receipt Date: 20090122
  Transmission Date: 20090719
  Serious: Yes (Hospitalization)
  Sender: FDA-Public Use
  Company Number: US-TEVA-184341USA

PATIENT
  Age: 73 Year
  Sex: Male
  Weight: 66.466 kg

DRUGS (8)
  1. ONXOL [Suspect]
     Indication: NON-SMALL CELL LUNG CANCER
     Dosage: ON DAY 1 OF 21 DAY CYCLE
     Route: 042
     Dates: start: 20070510
  2. CARBOPLATIN [Suspect]
     Indication: NON-SMALL CELL LUNG CANCER
     Dosage: AUC 6 CALVERT F, ON DAY 1 OF 21 DAY CYCLE
     Route: 042
     Dates: start: 20070510
  3. METOPROLOL SUCCINATE [Concomitant]
  4. LISINOPRIL [Concomitant]
  5. INEGY [Concomitant]
  6. AMLODIPINE [Concomitant]
  7. ONDANSETRON [Concomitant]
  8. ESOMEPRAZOLE MAGNESIUM [Concomitant]

REACTIONS (5)
  - DEHYDRATION [None]
  - NAUSEA [None]
  - RENAL FAILURE ACUTE [None]
  - SYNCOPE [None]
  - VOMITING [None]
